FAERS Safety Report 9236352 (Version 1)
Quarter: 2013Q2

REPORT INFORMATION
  Report Type: Spontaneous
  Country: US (occurrence: US)
  Receive Date: 20130417
  Receipt Date: 20130417
  Transmission Date: 20140414
  Serious: Yes (Other)
  Sender: FDA-Public Use
  Company Number: US-SANOFI-AVENTIS-2013SA038812

PATIENT
  Sex: Female

DRUGS (2)
  1. AUBAGIO [Suspect]
     Indication: MULTIPLE SCLEROSIS
     Dates: start: 2013
  2. ALL OTHER THERAPEUTIC PRODUCTS [Suspect]

REACTIONS (1)
  - Tunnel vision [Recovered/Resolved]
